FAERS Safety Report 5320284-5 (Version None)
Quarter: 2007Q2

REPORT INFORMATION
  Report Type: 
  Country: None (occurrence: None)
  Receive Date: 20070503
  Receipt Date: 20070503
  Transmission Date: 20071010
  Serious: Yes (Hospitalization)
  Sender: FDA-Public Use
  Company Number: None

PATIENT
  Sex: Male
  Weight: 66.3 kg

DRUGS (3)
  1. METHOTREXATE [Suspect]
     Dosage: 458 MG
  2. PEG-L-ASPARAGINASE (K-H) [Suspect]
     Dosage: 4500 MG
  3. VINCRISTINE SULFATE [Suspect]
     Dosage: 4 MG

REACTIONS (8)
  - ABDOMINAL PAIN [None]
  - BLOOD CREATININE INCREASED [None]
  - BLOOD POTASSIUM INCREASED [None]
  - BLOOD UREA INCREASED [None]
  - DRUG LEVEL INCREASED [None]
  - PYREXIA [None]
  - RENAL TUBULAR NECROSIS [None]
  - VOMITING [None]
